FAERS Safety Report 14967846 (Version 1)
Quarter: 2018Q2

REPORT INFORMATION
  Report Type: Spontaneous
  Country: US (occurrence: US)
  Receive Date: 20180511
  Receipt Date: 20180511
  Transmission Date: 20180711
  Serious: Yes (Other)
  Sender: FDA-Public Use
  Company Number: None

PATIENT
  Age: 48 Year
  Sex: Female
  Weight: 67.95 kg

DRUGS (5)
  1. TOPAMAX [Suspect]
     Active Substance: TOPIRAMATE
     Indication: MIGRAINE
     Dosage: ?          QUANTITY:1 DF DOSAGE FORM;?
     Route: 048
     Dates: start: 20180319, end: 20180417
  2. GABBAPENTIN [Concomitant]
     Active Substance: GABAPENTIN
  3. ANASTRAZOLE [Concomitant]
     Active Substance: ANASTROZOLE
  4. VITAMIN D [Concomitant]
     Active Substance: CHOLECALCIFEROL
  5. CALCIUM [Concomitant]
     Active Substance: CALCIUM

REACTIONS (14)
  - Throat tightness [None]
  - Cough [None]
  - Depression [None]
  - Musculoskeletal pain [None]
  - Paraesthesia [None]
  - Paranoia [None]
  - Aphonia [None]
  - Chest pain [None]
  - Back pain [None]
  - Therapy change [None]
  - Oropharyngeal pain [None]
  - Dyspnoea [None]
  - Urine abnormality [None]
  - Bone pain [None]

NARRATIVE: CASE EVENT DATE: 20180319
